FAERS Safety Report 15136126 (Version 2)
Quarter: 2018Q4

REPORT INFORMATION
  Report Type: Report from Study
  Country: FR (occurrence: FR)
  Receive Date: 20180712
  Receipt Date: 20181031
  Transmission Date: 20190204
  Serious: Yes (Other)
  Sender: FDA-Public Use
  Company Number: FR-PFIZER INC-2018273681

PATIENT
  Age: 8 Month
  Sex: Male
  Weight: 2.8 kg

DRUGS (7)
  1. VESICARE [Suspect]
     Active Substance: SOLIFENACIN SUCCINATE
     Dosage: 5 MG, 1X/DAY
     Route: 064
  2. TRILEPTAL [Suspect]
     Active Substance: OXCARBAZEPINE
     Dosage: 900 MG, 1X/DAY
     Route: 064
  3. ISOFUNDINE [Concomitant]
     Active Substance: CALCIUM CHLORIDE\MAGNESIUM CHLORIDE\MALIC ACID\POTASSIUM CHLORIDE\SODIUM ACETATE\SODIUM CHLORIDE
     Dosage: 10 CC/H
     Route: 064
  4. SYNTOCINON [Concomitant]
     Active Substance: OXYTOCIN
     Dosage: 5 IU, UNK
     Route: 064
  5. NEURONTIN [Suspect]
     Active Substance: GABAPENTIN
     Dosage: 1.8 G, 1X/DAY
     Route: 064
  6. GILENYA [Suspect]
     Active Substance: FINGOLIMOD HYDROCHLORIDE
     Dosage: 0.5 MG, 1X/DAY
     Route: 064
  7. NUBAIN [Concomitant]
     Active Substance: NALBUPHINE HYDROCHLORIDE
     Dosage: 0.5 DF (1/2 VIAL), UNK
     Route: 064

REACTIONS (2)
  - Foetal heart rate disorder [Recovered/Resolved]
  - Maternal exposure during pregnancy [Unknown]
